FAERS Safety Report 9593828 (Version 1)
Quarter: 2013Q4

REPORT INFORMATION
  Report Type: Spontaneous
  Country: IT (occurrence: IT)
  Receive Date: 20131004
  Receipt Date: 20131004
  Transmission Date: 20140711
  Serious: Yes (Other)
  Sender: FDA-Public Use
  Company Number: IT-TEVA-434274ISR

PATIENT
  Age: 67 Year
  Sex: Female
  Weight: 51 kg

DRUGS (6)
  1. VINCRISTINA TEVA [Suspect]
     Indication: NON-HODGKIN^S LYMPHOMA
     Dosage: 2 MG CYCLICAL
     Route: 040
     Dates: start: 20130402, end: 20130424
  2. MABTHERA [Suspect]
     Indication: NON-HODGKIN^S LYMPHOMA
     Dosage: 55 MG CYCLICAL
     Route: 042
     Dates: start: 20130402, end: 20130424
  3. ADRIBLASTINA [Suspect]
     Indication: NON-HODGKIN^S LYMPHOMA
     Dosage: 74 MG CYCLICAL
     Route: 041
     Dates: start: 20130402, end: 20130424
  4. SOLDESAM [Concomitant]
     Dosage: 4 MILLIGRAM DAILY;
     Route: 042
  5. RANIDIL [Concomitant]
     Dosage: 50 MILLIGRAM DAILY;
     Route: 042
  6. ONDANSETRONE HIKMA [Concomitant]
     Dosage: 8 MILLIGRAM DAILY;
     Route: 042
     Dates: start: 20130402, end: 20130424

REACTIONS (3)
  - Constipation [Unknown]
  - Dyspnoea [Unknown]
  - Fatigue [Unknown]
